FAERS Safety Report 4826413-1 (Version None)
Quarter: 2005Q4

REPORT INFORMATION
  Report Type: 
  Country: None (occurrence: None)
  Receive Date: 20051014
  Receipt Date: 20050815
  Transmission Date: 20060501
  Serious: No
  Sender: FDA-Public Use
  Company Number: 2005SP002366

PATIENT
  Age: 67 Year
  Sex: Female

DRUGS (5)
  1. LUNESTA [Suspect]
     Indication: INSOMNIA
     Dosage: HS;ORAL
     Route: 048
     Dates: start: 20050728
  2. SYNTHROID [Concomitant]
  3. CELEXA [Concomitant]
  4. ZELNORM [Concomitant]
  5. LISINOPRIL [Concomitant]

REACTIONS (4)
  - CONFUSIONAL STATE [None]
  - HEADACHE [None]
  - MIGRAINE [None]
  - RETINAL MIGRAINE [None]
